FAERS Safety Report 24722746 (Version 1)
Quarter: 2024Q4

REPORT INFORMATION
  Report Type: Spontaneous
  Country: US (occurrence: US)
  Receive Date: 20241211
  Receipt Date: 20241211
  Transmission Date: 20250114
  Serious: Yes (Hospitalization)
  Sender: INCYTE
  Company Number: US-INCYTE CORPORATION-2024IN012878

PATIENT

DRUGS (2)
  1. JAKAFI [Suspect]
     Active Substance: RUXOLITINIB
     Indication: Brain neoplasm malignant
     Dosage: 10 MILLIGRAM, BID
     Dates: start: 202409
  2. JAKAFI [Suspect]
     Active Substance: RUXOLITINIB
     Indication: Haemophagocytic lymphohistiocytosis
     Dosage: 10 MILLIGRAM, BID
     Dates: start: 20241205

REACTIONS (4)
  - Nervousness [Unknown]
  - Tension [Unknown]
  - Insomnia [Unknown]
  - Off label use [Unknown]
